FAERS Safety Report 13426826 (Version 1)
Quarter: 2017Q2

REPORT INFORMATION
  Report Type: Spontaneous
  Country: US (occurrence: US)
  Receive Date: 20170411
  Receipt Date: 20170411
  Transmission Date: 20170830
  Serious: No
  Sender: FDA-Public Use
  Company Number: None

PATIENT

DRUGS (1)
  1. COUMADIN [Suspect]
     Active Substance: WARFARIN SODIUM
     Route: 048

REACTIONS (9)
  - Incorrect dose administered [None]
  - Blood lactate dehydrogenase increased [None]
  - Thrombosis in device [None]
  - Tongue haemorrhage [None]
  - Dysphagia [None]
  - International normalised ratio increased [None]
  - Dyspnoea [None]
  - Drug dispensing error [None]
  - Haemorrhage [None]
